FAERS Safety Report 7529759-1 (Version None)
Quarter: 2011Q2

REPORT INFORMATION
  Report Type: 
  Country: None (occurrence: None)
  Receive Date: 20110520
  Receipt Date: 20100428
  Transmission Date: 20111010
  Serious: Yes (Disabling)
  Sender: FDA-Public Use
  Company Number: WAES 1003USA01813

PATIENT
  Age: 45 Year
  Sex: Male
  Weight: 68.0396 kg

DRUGS (13)
  1. EMEND [Suspect]
     Indication: VOMITING
     Dosage: 125 MG/1X/PO 80 MG/1X/PO 80 MG/1X/PO
     Dates: start: 20100302
  2. EMEND [Suspect]
     Indication: NAUSEA
     Dosage: 125 MG/1X/PO 80 MG/1X/PO 80 MG/1X/PO
     Dates: start: 20100302
  3. EMEND [Suspect]
     Indication: VOMITING
     Dosage: 125 MG/1X/PO 80 MG/1X/PO 80 MG/1X/PO
     Dates: start: 20090801
  4. EMEND [Suspect]
     Indication: NAUSEA
     Dosage: 125 MG/1X/PO 80 MG/1X/PO 80 MG/1X/PO
     Dates: start: 20090801
  5. DICAL D [Concomitant]
  6. VECTIBIX [Concomitant]
  7. OXALIPLATIN [Concomitant]
  8. ALOXI [Concomitant]
  9. FLUOROURACIL [Concomitant]
  10. IRINOTECAN HCL [Concomitant]
  11. BENADRYL [Concomitant]
  12. LEUCOVORIN CALCIUM [Concomitant]
  13. ERBITUX [Concomitant]

REACTIONS (1)
  - HICCUPS [None]
